FAERS Safety Report 7487355-9 (Version None)
Quarter: 2011Q2

REPORT INFORMATION
  Report Type: 
  Country: None (occurrence: None)
  Receive Date: 20110510
  Receipt Date: 20110427
  Transmission Date: 20111010
  Serious: Yes (Life-Threatening, Hospitalization)
  Sender: FDA-Public Use
  Company Number: TPA2011A00839

PATIENT
  Age: 78 Year
  Sex: Female

DRUGS (6)
  1. ADENURIC (FEBUXOSTAT) [Suspect]
     Indication: HYPERURICAEMIA
     Dosage: 120 MG (120 MG,1 IN 1 D) ORAL
     Route: 048
     Dates: start: 20100616, end: 20100630
  2. COLCHICINE [Concomitant]
  3. ACETAMINOPHEN [Concomitant]
  4. BISOPROLOL FUMARATE [Concomitant]
  5. TRAVATAN [Concomitant]
  6. FUROSEIMDE (FUROSEMIDE) [Concomitant]

REACTIONS (7)
  - CENTRAL NERVOUS SYSTEM INFLAMMATION [None]
  - REFRACTORINESS TO PLATELET TRANSFUSION [None]
  - DRUG INEFFECTIVE [None]
  - HAEMORRHAGE [None]
  - THROMBOCYTOPENIC PURPURA [None]
  - HAEMATOMA [None]
  - ECCHYMOSIS [None]
